FAERS Safety Report 6348841-8 (Version None)
Quarter: 2009Q3

REPORT INFORMATION
  Report Type: 
  Country: None (occurrence: None)
  Receive Date: 20090911
  Receipt Date: 20090828
  Transmission Date: 20100115
  Serious: Yes (Disabling)
  Sender: FDA-Public Use
  Company Number: GB-PFIZER INC-2009253462

PATIENT
  Age: 71 Year

DRUGS (5)
  1. BLINDED *MIRTAZAPINE [Suspect]
     Dosage: UNK
     Dates: start: 20090630
  2. BLINDED *NO SUBJECT DRUG [Suspect]
     Dosage: UNK
     Dates: start: 20090630
  3. BLINDED *PLACEBO [Suspect]
     Dosage: UNK
     Dates: start: 20090630
  4. BLINDED MIRTAZAPINE [Suspect]
     Dosage: UNK
     Dates: start: 20090630
  5. BLINDED SERTRALINE HCL [Suspect]
     Dosage: UNK
     Dates: start: 20090630

REACTIONS (1)
  - CHOLECYSTITIS [None]
